FAERS Safety Report 6196937-6 (Version None)
Quarter: 2009Q2

REPORT INFORMATION
  Report Type: 
  Country: None (occurrence: None)
  Receive Date: 20090518
  Receipt Date: 20090518
  Transmission Date: 20091009
  Serious: Yes (Other)
  Sender: FDA-Public Use
  Company Number: None

PATIENT
  Age: 43 Year
  Sex: Male

DRUGS (2)
  1. NEXIUM [Suspect]
     Indication: BARRETT'S OESOPHAGUS
     Dosage: ONE CAPSULE TWICE A DAY, 5 YEARS TO PRESENT TIME
  2. NEXIUM [Suspect]
     Indication: GASTROOESOPHAGEAL REFLUX DISEASE
     Dosage: ONE CAPSULE TWICE A DAY, 5 YEARS TO PRESENT TIME

REACTIONS (2)
  - DYSGEUSIA [None]
  - PRODUCT QUALITY ISSUE [None]
